FAERS Safety Report 6082878-1 (Version None)
Quarter: 2009Q1

REPORT INFORMATION
  Report Type: 
  Country: None (occurrence: None)
  Receive Date: 20090218
  Receipt Date: 20090211
  Transmission Date: 20090719
  Serious: Yes (Other)
  Sender: FDA-Public Use
  Company Number: PHEH2009US01642

PATIENT
  Sex: Female

DRUGS (1)
  1. RECLAST [Suspect]
     Dosage: UNK
     Dates: start: 20080101

REACTIONS (5)
  - ARTHRALGIA [None]
  - CONTUSION [None]
  - HEARING IMPAIRED [None]
  - NECK PAIN [None]
  - VEIN DISORDER [None]
